FAERS Safety Report 5187749-0 (Version None)
Quarter: 2006Q4

REPORT INFORMATION
  Report Type: 
  Country: None (occurrence: None)
  Receive Date: 20061214
  Receipt Date: 20061201
  Transmission Date: 20070319
  Serious: Yes (Death, Hospitalization)
  Sender: FDA-Public Use
  Company Number: 232727

PATIENT
  Age: 56 Year
  Sex: Female

DRUGS (14)
  1. RITUXAN [Suspect]
     Indication: RHEUMATOID ARTHRITIS
     Dosage: 1000 MG, INTRAVENOUS
     Route: 042
     Dates: start: 20060801
  2. RITUXAN [Suspect]
     Indication: RHEUMATOID ARTHRITIS
     Dosage: 1000 MG, INTRAVENOUS
     Route: 042
     Dates: start: 20060815
  3. METHOTREXATE [Concomitant]
  4. RELAFEN [Concomitant]
  5. VICODIN [Concomitant]
  6. PREDNISONE TAB [Concomitant]
  7. FOSAMAX [Concomitant]
  8. PREMARIN [Concomitant]
  9. ZOLOFT [Concomitant]
  10. SYNTHROID [Concomitant]
  11. LASIX [Concomitant]
  12. K-DUR 10 [Concomitant]
  13. PREVACID [Concomitant]
  14. LIPITOR [Concomitant]

REACTIONS (4)
  - ACUTE RESPIRATORY DISTRESS SYNDROME [None]
  - MULTI-ORGAN FAILURE [None]
  - PNEUMONIA [None]
  - SEPSIS [None]
